FAERS Safety Report 12830453 (Version 3)
Quarter: 2017Q1

REPORT INFORMATION
  Report Type: Spontaneous
  Country: US (occurrence: US)
  Receive Date: 20161007
  Receipt Date: 20170222
  Transmission Date: 20170428
  Serious: Yes (Other)
  Sender: FDA-Public Use
  Company Number: US-SA-2016SA134150

PATIENT
  Age: 27 Year
  Sex: Male

DRUGS (4)
  1. ADDERALL [Concomitant]
     Active Substance: AMPHETAMINE ASPARTATE\AMPHETAMINE SULFATE\DEXTROAMPHETAMINE SACCHARATE\DEXTROAMPHETAMINE SULFATE
  2. GABAPENTIN. [Concomitant]
     Active Substance: GABAPENTIN
  3. AUBAGIO [Suspect]
     Active Substance: TERIFLUNOMIDE
     Indication: MULTIPLE SCLEROSIS
     Route: 048
  4. NUVIGIL [Concomitant]
     Active Substance: ARMODAFINIL

REACTIONS (11)
  - Product use issue [Unknown]
  - Optic neuritis [Unknown]
  - Decreased interest [Unknown]
  - Dehydration [Unknown]
  - Depression [Recovering/Resolving]
  - Depressed mood [Unknown]
  - Fatigue [Recovering/Resolving]
  - Multiple sclerosis relapse [Recovered/Resolved]
  - Balance disorder [Unknown]
  - Abdominal discomfort [Unknown]
  - Diarrhoea [Unknown]
